FAERS Safety Report 20573774 (Version 1)
Quarter: 2022Q1

REPORT INFORMATION
  Report Type: Spontaneous
  Country: BR (occurrence: BR)
  Receive Date: 20220309
  Receipt Date: 20220309
  Transmission Date: 20220424
  Serious: Yes (Other)
  Sender: FDA-Public Use
  Company Number: BR-009507513-2012BRA010235

PATIENT
  Sex: Female

DRUGS (1)
  1. ETONOGESTREL [Suspect]
     Active Substance: ETONOGESTREL
     Dosage: 1 IMPLANT, INSERTED ON THURSDAY (UNSPECIFIED)
     Route: 059

REACTIONS (5)
  - Syncope [Recovering/Resolving]
  - Device embolisation [Unknown]
  - Erythema [Recovering/Resolving]
  - Feeling abnormal [Unknown]
  - Complication associated with device [Unknown]
